FAERS Safety Report 20145265 (Version 1)
Quarter: 2021Q4

REPORT INFORMATION
  Report Type: Spontaneous
  Country: US (occurrence: US)
  Receive Date: 20211203
  Receipt Date: 20211203
  Transmission Date: 20220303
  Serious: Yes (Other)
  Sender: FDA-Public Use
  Company Number: US-UCBSA-2021055942

PATIENT
  Age: 34 Year
  Sex: Female

DRUGS (2)
  1. LEVETIRACETAM [Suspect]
     Active Substance: LEVETIRACETAM
     Indication: Partial seizures
     Dosage: 3000 MILLIGRAMS
  2. LAMOTRIGINE [Concomitant]
     Active Substance: LAMOTRIGINE
     Indication: Partial seizures
     Dosage: 250 MILLIGRAM

REACTIONS (3)
  - Partial seizures [Unknown]
  - Cognitive disorder [Unknown]
  - Staring [Unknown]
